FAERS Safety Report 5478172-X (Version None)
Quarter: 2007Q4

REPORT INFORMATION
  Report Type: 
  Country: None (occurrence: None)
  Receive Date: 20071005
  Receipt Date: 20070213
  Transmission Date: 20080405
  Serious: Yes (Hospitalization)
  Sender: FDA-Public Use
  Company Number: US-BRISTOL-MYERS SQUIBB COMPANY-13687348

PATIENT
  Age: 62 Year
  Sex: Male

DRUGS (16)
  1. PRINIVIL [Suspect]
     Route: 048
     Dates: start: 20040929, end: 20050623
  2. IRBESARTAN [Suspect]
     Route: 048
     Dates: start: 20050425, end: 20050602
  3. ASPIRIN [Concomitant]
  4. CILOSTAZOL [Concomitant]
  5. DARBEPOETIN ALFA [Concomitant]
  6. FOLIC ACID [Concomitant]
  7. FUROSEMIDE [Concomitant]
  8. GABAPENTIN [Concomitant]
  9. GLYBURIDE [Concomitant]
  10. INSULIN SUSPENSION, ISOPHANE [Concomitant]
  11. METOPROLOL TARTRATE [Concomitant]
  12. NAPHAZOLINE HCL [Concomitant]
  13. PHENIRAMINE MALEATE [Concomitant]
  14. NITROGLYCERIN [Concomitant]
  15. SIMVASTATIN [Concomitant]
  16. TERAZOSIN HCL [Concomitant]

REACTIONS (1)
  - BLOOD CREATINE INCREASED [None]
